FAERS Safety Report 5186763-9 (Version None)
Quarter: 2006Q4

REPORT INFORMATION
  Report Type: 
  Country: None (occurrence: None)
  Receive Date: 20061220
  Receipt Date: 20061101
  Transmission Date: 20070319
  Serious: No
  Sender: FDA-Public Use
  Company Number: US-AMGEN-KDL198897

PATIENT
  Sex: Female

DRUGS (2)
  1. ENBREL [Suspect]
     Indication: RHEUMATOID ARTHRITIS
     Route: 058
     Dates: start: 20060801
  2. ARAVA [Concomitant]
     Route: 048
     Dates: start: 19970101

REACTIONS (4)
  - CHILLS [None]
  - FATIGUE [None]
  - HYPERHIDROSIS [None]
  - PAIN [None]
